FAERS Safety Report 7819760-2 (Version None)
Quarter: 2011Q4

REPORT INFORMATION
  Report Type: 
  Country: None (occurrence: None)
  Receive Date: 20111018
  Receipt Date: 20110531
  Transmission Date: 20120403
  Serious: No
  Sender: FDA-Public Use
  Company Number: US-ASTRAZENECA-2011SE33546

PATIENT
  Age: 23583 Day
  Sex: Female
  Weight: 63.5 kg

DRUGS (5)
  1. SYMBICORT [Suspect]
     Indication: MULTIPLE ALLERGIES
     Dosage: 160 MCG BID
     Route: 055
     Dates: start: 20110517
  2. ACTOS [Concomitant]
     Indication: DIABETES MELLITUS
  3. EVISTA [Concomitant]
  4. SYMBICORT [Suspect]
     Indication: CHRONIC OBSTRUCTIVE PULMONARY DISEASE
     Dosage: 160 MCG BID
     Route: 055
     Dates: start: 20110517
  5. GLIMEPIRIDE [Concomitant]
     Indication: DIABETES MELLITUS

REACTIONS (1)
  - DYSPNOEA [None]
